FAERS Safety Report 4816449-9 (Version None)
Quarter: 2005Q4

REPORT INFORMATION
  Report Type: 
  Country: None (occurrence: None)
  Receive Date: 20051028
  Receipt Date: 20051013
  Transmission Date: 20060501
  Serious: Yes (Other)
  Sender: FDA-Public Use
  Company Number: 200502IM00008

PATIENT
  Age: 44 Year
  Sex: Male

DRUGS (3)
  1. INFERAX            (INTERFERON ALFACON-1) [Suspect]
     Indication: HEPATITIS C
     Dosage: 9 UG, QD, SUBCUTANEOUS
     Route: 058
     Dates: start: 20040318, end: 20050111
  2. RIBAVIRIN [Suspect]
     Indication: HEPATITIS C
     Dosage: 800 MG, QD, ORAL
     Route: 048
     Dates: start: 20040616, end: 20050111
  3. ACETAMINOPHEN [Concomitant]

REACTIONS (3)
  - ASPARTATE AMINOTRANSFERASE INCREASED [None]
  - BLOOD CREATINE PHOSPHOKINASE INCREASED [None]
  - CHEST PAIN [None]
